FAERS Safety Report 9049809 (Version 1)
Quarter: 2013Q1

REPORT INFORMATION
  Report Type: Spontaneous
  Country: US (occurrence: US)
  Receive Date: 20130205
  Receipt Date: 20130205
  Transmission Date: 20140127
  Serious: Yes (Hospitalization, Other)
  Sender: FDA-Public Use
  Company Number: US-BAYER-2013-013481

PATIENT
  Age: 33 Year
  Sex: Female

DRUGS (4)
  1. YASMIN [Suspect]
  2. SYNTHROID [Concomitant]
  3. SARAFEM [Concomitant]
  4. FOLATE SODIUM [Concomitant]

REACTIONS (2)
  - Cholecystitis chronic [None]
  - Pulmonary embolism [None]
